FAERS Safety Report 12000954 (Version 1)
Quarter: 2016Q1

REPORT INFORMATION
  Report Type: Spontaneous
  Country: US (occurrence: US)
  Receive Date: 20160204
  Receipt Date: 20160204
  Transmission Date: 20160526
  Serious: Yes (Other)
  Sender: FDA-Public Use
  Company Number: US-MYLANLABS-2016M1004418

PATIENT

DRUGS (3)
  1. GEMCITABINE [Suspect]
     Active Substance: GEMCITABINE\GEMCITABINE HYDROCHLORIDE
     Indication: BREAST CANCER METASTATIC
     Dosage: 800 MG/M2, DAY 1, 8, 15 Q28D
     Dates: start: 201409, end: 201502
  2. CAPECITABINE. [Suspect]
     Active Substance: CAPECITABINE
     Indication: BREAST CANCER METASTATIC
     Dosage: UNK
     Dates: start: 201401, end: 201409
  3. FULVESTRANT [Suspect]
     Active Substance: FULVESTRANT
     Indication: BREAST CANCER METASTATIC
     Dosage: UNK
     Dates: start: 201308, end: 201401

REACTIONS (1)
  - Malignant neoplasm progression [Not Recovered/Not Resolved]
